FAERS Safety Report 5638230-3 (Version None)
Quarter: 2008Q1

REPORT INFORMATION
  Report Type: 
  Country: None (occurrence: None)
  Receive Date: 20080226
  Receipt Date: 20080215
  Transmission Date: 20080703
  Serious: Yes (Death, Life-Threatening, Other)
  Sender: FDA-Public Use
  Company Number: GB-JNJFOC-20080201512

PATIENT
  Sex: Female
  Weight: 41 kg

DRUGS (7)
  1. REMICADE [Suspect]
     Indication: RHEUMATOID ARTHRITIS
     Route: 042
  2. TACROLIMUS [Concomitant]
  3. PREDNISOLONE [Concomitant]
  4. ATENOLOL [Concomitant]
  5. VITAMIN B-12 [Concomitant]
  6. DIDRONEL [Concomitant]
  7. FOLIC ACID [Concomitant]

REACTIONS (2)
  - CEREBRAL INFARCTION [None]
  - RENAL FAILURE ACUTE [None]
